FAERS Safety Report 8665605 (Version 2)
Quarter: 2013Q1

REPORT INFORMATION
  Report Type: Spontaneous
  Country: DK (occurrence: None)
  Receive Date: 20120629
  Receipt Date: 20121005
  Transmission Date: 20140127
  Serious: Yes (Other)
  Sender: FDA-Public Use
  Company Number: 2012MA007650

PATIENT
  Age: 31 Year
  Sex: Female

DRUGS (2)
  1. MIRTAZAPINE [Suspect]
     Indication: DEPRESSION
     Dosage: 30 MG; PO
     Route: 048
     Dates: start: 2006
  2. HALOPERIDOL LACTATE [Suspect]
     Indication: ANXIETY
     Route: 048
     Dates: start: 201201

REACTIONS (2)
  - Gestational diabetes [None]
  - Maternal exposure during pregnancy [None]
